FAERS Safety Report 5463334-8 (Version None)
Quarter: 2007Q3

REPORT INFORMATION
  Report Type: 
  Country: None (occurrence: None)
  Receive Date: 20070920
  Receipt Date: 20070911
  Transmission Date: 20080115
  Serious: Yes (Hospitalization)
  Sender: FDA-Public Use
  Company Number: PHBS2007US14922

PATIENT
  Age: 38 Year
  Sex: Female

DRUGS (11)
  1. METHYLPHENIDATE HCL [Suspect]
     Indication: REHABILITATION THERAPY
     Dosage: 10 MG, BID
  2. ASCORBIC ACID [Concomitant]
     Dosage: 1000 MG/DAY
  3. DIAZEPAM [Concomitant]
     Dosage: 5 MG, BID
  4. GLIPIZIDE [Concomitant]
     Dosage: 10 MG, BID
  5. INSULIN [Concomitant]
     Dosage: 0.03 MLX100 UNITS/ML
  6. METAXALONE [Concomitant]
     Dosage: 800 MG/DAY
  7. METFORMIN HCL [Concomitant]
     Dosage: 500 MG, BID
  8. ALPRAZOLAM [Concomitant]
     Dosage: 1 MG, Q8H
  9. BISACODYL [Concomitant]
     Dosage: 10 MG, PRN
  10. DEXTROSE [Concomitant]
     Dosage: 50 ML, PRN
  11. HYDROCODONE W/PARACETAMOL [Concomitant]
     Dosage: 10 MG/500 MG EVERY 4 H/PRN

REACTIONS (2)
  - BLOOD GLUCOSE DECREASED [None]
  - THERAPEUTIC RESPONSE UNEXPECTED [None]
